FAERS Safety Report 6235925-8 (Version None)
Quarter: 2009Q2

REPORT INFORMATION
  Report Type: 
  Country: None (occurrence: None)
  Receive Date: 20090619
  Receipt Date: 20090611
  Transmission Date: 20091009
  Serious: Yes (Hospitalization)
  Sender: FDA-Public Use
  Company Number: US-B.I. PHARMACEUTICALS,INC./RIDGEFIELD-2009-BP-07217BP

PATIENT
  Sex: Male

DRUGS (3)
  1. FLOMAX [Suspect]
     Indication: PROSTATOMEGALY
     Dates: start: 20060101, end: 20080401
  2. FLOMAX [Suspect]
     Dates: start: 20090301
  3. CARTIA XT [Suspect]
     Indication: HEART RATE INCREASED
     Dosage: 120MG
     Route: 048
     Dates: start: 20081201

REACTIONS (5)
  - ATRIAL FIBRILLATION [None]
  - DYSURIA [None]
  - GYNAECOMASTIA [None]
  - LUNG DISORDER [None]
  - PROSTATOMEGALY [None]
